FAERS Safety Report 6731881-4 (Version None)
Quarter: 2010Q2

REPORT INFORMATION
  Report Type: 
  Country: None (occurrence: None)
  Receive Date: 20100514
  Receipt Date: 20100429
  Transmission Date: 20101027
  Serious: Yes (Other)
  Sender: FDA-Public Use
  Company Number: US-1181753

PATIENT
  Sex: Female

DRUGS (1)
  1. SYSTANE EYE DROPS [Suspect]
     Dosage: OPHTHALMIC
     Route: 047

REACTIONS (1)
  - AMNESIA [None]
